FAERS Safety Report 13265384 (Version 4)
Quarter: 2017Q3

REPORT INFORMATION
  Report Type: Report from Study
  Country: None (occurrence: CZ)
  Receive Date: 20170223
  Receipt Date: 20170829
  Transmission Date: 20171127
  Serious: Yes (Other)
  Sender: FDA-Public Use
  Company Number: CZ-CELGENEUS-CZE-2017022692

PATIENT
  Age: 56 Year
  Sex: Male

DRUGS (1)
  1. IMNOVID [Suspect]
     Active Substance: POMALIDOMIDE
     Indication: PLASMA CELL MYELOMA
     Route: 048

REACTIONS (21)
  - Fatigue [Unknown]
  - Spinal cord compression [Unknown]
  - Nausea [Unknown]
  - Diarrhoea [Unknown]
  - Constipation [Unknown]
  - Myopathy [Unknown]
  - Muscle spasms [Unknown]
  - Febrile neutropenia [Unknown]
  - Mobility decreased [Unknown]
  - Thrombocytopenia [Unknown]
  - Neuropathy peripheral [Unknown]
  - Face oedema [Unknown]
  - Tremor [Unknown]
  - Thrombosis [Unknown]
  - Pneumonia [Unknown]
  - Neutropenia [Unknown]
  - Decreased appetite [Unknown]
  - Back pain [Unknown]
  - Paresis [Unknown]
  - Infection [Unknown]
  - Oedema peripheral [Unknown]

NARRATIVE: CASE EVENT DATE: 201407
